FAERS Safety Report 8927290 (Version 1)
Quarter: 2012Q4

REPORT INFORMATION
  Report Type: 
  Country: US (occurrence: US)
  Receive Date: 20121127
  Receipt Date: 20121127
  Transmission Date: 20130627
  Serious: Yes (Other)
  Sender: FDA-Public Use
  Company Number: US-PFIZER INC-2012285760

PATIENT
  Sex: Male

DRUGS (1)
  1. CHAPSTICK LIPMOISTURIZER [Suspect]
     Dosage: UNK

REACTIONS (2)
  - Skin disorder [Unknown]
  - Herpes virus infection [Unknown]
